FAERS Safety Report 16915039 (Version 1)
Quarter: 2019Q4

REPORT INFORMATION
  Report Type: Report from Study
  Country: US (occurrence: US)
  Receive Date: 20191014
  Receipt Date: 20191014
  Transmission Date: 20200122
  Serious: Yes (Hospitalization, Other)
  Sender: FDA-Public Use
  Company Number: US-EISAI MEDICAL RESEARCH-EC-2019-051421

PATIENT
  Age: 70 Year
  Sex: Male

DRUGS (3)
  1. LENVIMA [Suspect]
     Active Substance: LENVATINIB
     Indication: HEPATOCELLULAR CARCINOMA
     Route: 048
     Dates: start: 20190125, end: 20190905
  2. LISINOPRIL. [Concomitant]
     Active Substance: LISINOPRIL
  3. BLOOD TRANSFUSION [Concomitant]
     Active Substance: HUMAN RED BLOOD CELL

REACTIONS (10)
  - Diabetes mellitus [Unknown]
  - Nausea [Not Recovered/Not Resolved]
  - Haemoglobin decreased [Unknown]
  - Renal failure [Unknown]
  - Constipation [Unknown]
  - Vomiting [Recovered/Resolved]
  - Blood creatinine increased [Unknown]
  - Rash macular [Not Recovered/Not Resolved]
  - Petechiae [Recovering/Resolving]
  - Blood pressure increased [Not Recovered/Not Resolved]

NARRATIVE: CASE EVENT DATE: 2019
